FAERS Safety Report 6967902-3 (Version None)
Quarter: 2010Q3

REPORT INFORMATION
  Report Type: 
  Country: None (occurrence: None)
  Receive Date: 20100907
  Receipt Date: 20100318
  Transmission Date: 20110219
  Serious: No
  Sender: FDA-Public Use
  Company Number: B0641083A

PATIENT
  Sex: Male

DRUGS (2)
  1. ROPINIROLE HYDROCHLORIDE [Suspect]
     Indication: PRODUCT USED FOR UNKNOWN INDICATION
     Route: 048
     Dates: start: 20100301
  2. CITALOPRAM HYDROBROMIDE [Suspect]
     Indication: PRODUCT USED FOR UNKNOWN INDICATION
     Route: 065

REACTIONS (10)
  - DRUG INTERACTION [None]
  - DRY MOUTH [None]
  - FATIGUE [None]
  - HEADACHE [None]
  - HYPERHIDROSIS [None]
  - JOINT SWELLING [None]
  - MYALGIA [None]
  - OEDEMA PERIPHERAL [None]
  - OFF LABEL USE [None]
  - THERAPEUTIC RESPONSE UNEXPECTED [None]
